FAERS Safety Report 7998923-X (Version None)
Quarter: 2011Q4

REPORT INFORMATION
  Report Type: 
  Country: None (occurrence: None)
  Receive Date: 20111221
  Receipt Date: 20111216
  Transmission Date: 20120403
  Serious: Yes (Life-Threatening)
  Sender: FDA-Public Use
  Company Number: RU-VIIV HEALTHCARE LIMITED-B0768824A

PATIENT
  Sex: Female

DRUGS (4)
  1. REYATAZ [Concomitant]
     Indication: HIV INFECTION
     Dates: start: 20111111
  2. RITONAVIR [Concomitant]
     Indication: HIV INFECTION
     Dates: start: 20111111
  3. ABACAVIR [Suspect]
     Indication: HIV INFECTION
     Route: 048
     Dates: start: 20111114, end: 20111120
  4. VIDEX [Concomitant]
     Indication: HIV INFECTION
     Dates: start: 20111111

REACTIONS (8)
  - PYREXIA [None]
  - ABDOMINAL PAIN UPPER [None]
  - ASTHENIA [None]
  - HEADACHE [None]
  - VOMITING [None]
  - HYPERSENSITIVITY [None]
  - DIZZINESS [None]
  - NAUSEA [None]
